FAERS Safety Report 6044370-X (Version None)
Quarter: 2009Q1

REPORT INFORMATION
  Report Type: 
  Country: None (occurrence: None)
  Receive Date: 20090115
  Receipt Date: 20090115
  Transmission Date: 20090719
  Serious: Yes (Hospitalization, Disabling)
  Sender: FDA-Public Use
  Company Number: None

PATIENT
  Sex: Female

DRUGS (4)
  1. AREDIA [Suspect]
     Indication: MULTIPLE MYELOMA
     Dates: start: 20010201, end: 20020701
  2. PAXIL [Concomitant]
  3. ATIVAN [Concomitant]
  4. ZANTAC [Concomitant]

REACTIONS (2)
  - BONE DISORDER [None]
  - JAW DISORDER [None]
